FAERS Safety Report 24313476 (Version 1)
Quarter: 2024Q3

REPORT INFORMATION
  Report Type: Report from Study
  Country: BE (occurrence: BE)
  Receive Date: 20240912
  Receipt Date: 20240912
  Transmission Date: 20241017
  Serious: Yes (Hospitalization, Other)
  Sender: ABBVIE
  Company Number: BE-ABBVIE-5783535

PATIENT
  Sex: Male
  Weight: 91 kg

DRUGS (10)
  1. CARBIDOPA\LEVODOPA [Suspect]
     Active Substance: CARBIDOPA\LEVODOPA
     Indication: Parkinson^s disease
     Dosage: MD: 9.0ML, CD: 3.2ML/H, ED: 2.00ML DURING 16 HOURS
     Route: 050
     Dates: start: 20231113, end: 20240808
  2. CARBIDOPA\LEVODOPA [Suspect]
     Active Substance: CARBIDOPA\LEVODOPA
     Dosage: MD: 9.0ML, CD: 3.2ML/H, ED: 1.50ML DURING 16 HOURS
     Route: 050
     Dates: start: 20230802, end: 20231113
  3. CARBIDOPA\LEVODOPA [Suspect]
     Active Substance: CARBIDOPA\LEVODOPA
     Route: 050
     Dates: start: 20210812
  4. CARBIDOPA\LEVODOPA [Suspect]
     Active Substance: CARBIDOPA\LEVODOPA
     Dosage: MD: 9.0ML, CD: 3.2ML/H, ED: 2.00ML DURING 16 HOURS
     Route: 050
     Dates: start: 20240808
  5. XADAGO [Concomitant]
     Active Substance: SAFINAMIDE MESYLATE
     Indication: Parkinson^s disease
     Dosage: FREQUENCY TEXT: AT 8 HOUR
  6. BENSERAZIDE\LEVODOPA [Concomitant]
     Active Substance: BENSERAZIDE\LEVODOPA
     Indication: Parkinson^s disease
     Dosage: FORM STRENGTH: 250 MILLIGRAM?FREQUENCY TEXT: AT 8 HOUR
     Route: 048
  7. BENSERAZIDE\LEVODOPA [Concomitant]
     Active Substance: BENSERAZIDE\LEVODOPA
     Indication: Parkinson^s disease
     Dosage: FORM STRENGTH: 250 MILLIGRAM?FREQUENCY TEXT: AT 12.00-16.00-20.00
     Route: 048
  8. ARTANE [Concomitant]
     Active Substance: TRIHEXYPHENIDYL HYDROCHLORIDE
     Indication: Parkinson^s disease
     Dosage: 2MG 0.5 TABLET?AT BEDTIME
     Route: 048
  9. PRAMIPEXOLE [Concomitant]
     Active Substance: PRAMIPEXOLE\PRAMIPEXOLE DIHYDROCHLORIDE
     Indication: Parkinson^s disease
     Dosage: 1 TABLET?FORM STRENGTH: 1.05 MILLIGRAM?FREQUENCY TEXT: AT 8 HOUR
     Route: 048
  10. BENSERAZIDE\LEVODOPA [Concomitant]
     Active Substance: BENSERAZIDE\LEVODOPA
     Indication: Parkinson^s disease
     Dosage: FORM STRENGTH: 125 MILLIGRAM?FREQUENCY TEXT: AT BEDTIME
     Route: 048

REACTIONS (13)
  - Embedded device [Recovered/Resolved]
  - Device dislocation [Unknown]
  - Stoma site discharge [Not Recovered/Not Resolved]
  - Stoma site irritation [Not Recovered/Not Resolved]
  - Stoma site erythema [Not Recovered/Not Resolved]
  - Device issue [Recovering/Resolving]
  - Device alarm issue [Unknown]
  - Device issue [Unknown]
  - Stoma site discharge [Unknown]
  - Device physical property issue [Not Recovered/Not Resolved]
  - Device physical property issue [Unknown]
  - Device occlusion [Unknown]
  - Device occlusion [Recovered/Resolved]

NARRATIVE: CASE EVENT DATE: 20240101
